FAERS Safety Report 7375939-8 (Version None)
Quarter: 2011Q1

REPORT INFORMATION
  Report Type: 
  Country: None (occurrence: None)
  Receive Date: 20110325
  Receipt Date: 20110228
  Transmission Date: 20110831
  Serious: No
  Sender: FDA-Public Use
  Company Number: US-B.I. PHARMACEUTICALS,INC./RIDGEFIELD-2011-BP-05657BP

PATIENT
  Sex: Male

DRUGS (8)
  1. VYTORIN [Concomitant]
     Indication: BLOOD CHOLESTEROL INCREASED
     Route: 048
     Dates: start: 20040101
  2. PACERONE [Concomitant]
     Indication: ATRIAL FIBRILLATION
     Dosage: 200 MG
     Route: 048
     Dates: start: 20110216
  3. TOPROL-XL [Concomitant]
     Indication: HYPERTENSION
     Dosage: 10 MG
     Route: 048
     Dates: start: 20040101
  4. HYDROCHLOROTHIAZIDE [Concomitant]
     Indication: HYPERTENSION
     Dosage: 25 MG
     Route: 048
     Dates: start: 20040101
  5. NIASPAN [Concomitant]
     Indication: BLOOD CHOLESTEROL INCREASED
     Dosage: 500 MG
     Route: 048
     Dates: start: 20040101
  6. PRADAXA [Suspect]
     Indication: ATRIAL FIBRILLATION
     Dosage: 300 MG
     Route: 048
     Dates: start: 20110216
  7. LOTREL [Concomitant]
     Indication: HYPERTENSION
     Route: 048
     Dates: start: 20040101
  8. ASPIRIN [Concomitant]
     Indication: CARDIAC DISORDER
     Dosage: 325 MG
     Route: 048

REACTIONS (5)
  - DYSPEPSIA [None]
  - RHINORRHOEA [None]
  - OSTEITIS [None]
  - FOREIGN BODY [None]
  - DIARRHOEA [None]
